FAERS Safety Report 7940736-9 (Version None)
Quarter: 2011Q4

REPORT INFORMATION
  Report Type: 
  Country: None (occurrence: None)
  Receive Date: 20111114
  Receipt Date: 20100922
  Transmission Date: 20120403
  Serious: Yes (Death)
  Sender: FDA-Public Use
  Company Number: 2010S1001394

PATIENT

DRUGS (5)
  1. VANCOMYCIN [Concomitant]
  2. SYNERCID [Concomitant]
  3. CUBICIN [Suspect]
     Indication: BACTERAEMIA
     Dosage: 6 MG/KG
  4. CUBICIN [Suspect]
     Indication: ENDOCARDITIS
     Dosage: 6 MG/KG
  5. LINEZOLID [Concomitant]

REACTIONS (3)
  - DRUG INEFFECTIVE [None]
  - DEATH [None]
  - PATHOGEN RESISTANCE [None]
